FAERS Safety Report 10203400 (Version 1)
Quarter: 2014Q2

REPORT INFORMATION
  Report Type: Spontaneous
  Country: US (occurrence: None)
  Receive Date: 20140523
  Receipt Date: 20140523
  Transmission Date: 20141212
  Serious: Yes (Death)
  Sender: FDA-Public Use
  Company Number: INS201405-000078

PATIENT
  Sex: Female

DRUGS (3)
  1. SUBSYS SUBLINGUAL SPRAY (FENTANYL) [Suspect]
     Indication: CANCER PAIN
     Dosage: 400 MCG, ONE SPRAY, PER SIX HOUR
     Route: 060
  2. MS-CONTIN (MORPHINE SULFATE) (MORPHINE SULFATE) [Concomitant]
  3. PERCOSET (OXYCODONE, PARACETAMOL) (OXYCODONE, PARACETAMOL) [Concomitant]

REACTIONS (1)
  - Malignant neoplasm progression [None]
